FAERS Safety Report 25612070 (Version 1)
Quarter: 2025Q3

REPORT INFORMATION
  Report Type: Spontaneous
  Country: US (occurrence: US)
  Receive Date: 20250728
  Receipt Date: 20250728
  Transmission Date: 20251020
  Serious: Yes (Other)
  Sender: AMGEN
  Company Number: US-AMGEN-USASP2025144141

PATIENT
  Age: 73 Year
  Sex: Male

DRUGS (12)
  1. PREDNISONE [Suspect]
     Active Substance: PREDNISONE
     Indication: Optic ischaemic neuropathy
     Route: 048
  2. CARVEDILOL [Concomitant]
     Active Substance: CARVEDILOL
  3. AMLODIPINE [Concomitant]
     Active Substance: AMLODIPINE BESYLATE
  4. ASPIRIN [Concomitant]
     Active Substance: ASPIRIN
  5. HYDROCHLOROTHIAZIDE [Concomitant]
     Active Substance: HYDROCHLOROTHIAZIDE
  6. OZEMPIC [Concomitant]
     Active Substance: SEMAGLUTIDE
     Indication: Obesity
     Dates: start: 202304
  7. OZEMPIC [Concomitant]
     Active Substance: SEMAGLUTIDE
     Dates: start: 202305
  8. OZEMPIC [Concomitant]
     Active Substance: SEMAGLUTIDE
     Dates: start: 202306
  9. OZEMPIC [Concomitant]
     Active Substance: SEMAGLUTIDE
     Dates: start: 202307
  10. OZEMPIC [Concomitant]
     Active Substance: SEMAGLUTIDE
     Dates: start: 202308
  11. OZEMPIC [Concomitant]
     Active Substance: SEMAGLUTIDE
     Route: 065
     Dates: start: 202309
  12. OZEMPIC [Concomitant]
     Active Substance: SEMAGLUTIDE
     Dates: start: 202310

REACTIONS (5)
  - Optic atrophy [Unknown]
  - Visual field defect [Not Recovered/Not Resolved]
  - Colour vision tests abnormal [Recovering/Resolving]
  - Orthostatic hypotension [Recovering/Resolving]
  - Off label use [Unknown]
